FAERS Safety Report 5411602-8 (Version None)
Quarter: 2007Q3

REPORT INFORMATION
  Report Type: 
  Country: None (occurrence: None)
  Receive Date: 20070810
  Receipt Date: 20070731
  Transmission Date: 20080115
  Serious: Yes (Other)
  Sender: FDA-Public Use
  Company Number: US-PFIZER INC-2007056537

PATIENT
  Sex: Male
  Weight: 90 kg

DRUGS (8)
  1. CHANTIX [Suspect]
     Indication: SMOKING CESSATION THERAPY
     Dates: start: 20070522, end: 20070703
  2. CHANTIX [Suspect]
     Indication: TOBACCO USER
  3. METHADONE HCL [Concomitant]
     Indication: BACK PAIN
  4. LISINOPRIL [Concomitant]
     Indication: HYPERTENSION
  5. CYMBALTA [Concomitant]
     Indication: DEPRESSION
  6. XANAX [Concomitant]
  7. DOXEPIN HCL [Concomitant]
     Indication: BACK PAIN
  8. NEURONTIN [Concomitant]
     Indication: BACK PAIN

REACTIONS (4)
  - BURNING SENSATION [None]
  - HYPOAESTHESIA [None]
  - PARAESTHESIA [None]
  - SKIN REACTION [None]
